FAERS Safety Report 24399104 (Version 1)
Quarter: 2024Q4

REPORT INFORMATION
  Report Type: Report from Study
  Country: US (occurrence: US)
  Receive Date: 20241004
  Receipt Date: 20241004
  Transmission Date: 20250114
  Serious: Yes (Other)
  Sender: ABBVIE
  Company Number: US-ABBVIE-5943948

PATIENT
  Age: 62 Year
  Sex: Male

DRUGS (1)
  1. SKYRIZI [Suspect]
     Active Substance: RISANKIZUMAB-RZAA
     Indication: Psoriasis
     Route: 058

REACTIONS (7)
  - Intestinal anastomosis [Unknown]
  - Dry skin [Unknown]
  - Constipation [Unknown]
  - Crohn^s disease [Unknown]
  - Pruritus [Unknown]
  - Scab [Unknown]
  - Surgery [Unknown]

NARRATIVE: CASE EVENT DATE: 20231001
